FAERS Safety Report 19902651 (Version 1)
Quarter: 2021Q3

REPORT INFORMATION
  Report Type: Report from Study
  Country: US (occurrence: US)
  Receive Date: 20210930
  Receipt Date: 20210930
  Transmission Date: 20211014
  Serious: Yes (Other)
  Sender: FDA-Public Use
  Company Number: US-SA-2020SA222213

PATIENT
  Age: 68 Year
  Sex: Female

DRUGS (4)
  1. CARAFATE [Concomitant]
     Active Substance: SUCRALFATE
     Indication: HELICOBACTER INFECTION
     Dosage: TABLET
  2. DUPILUMAB [Suspect]
     Active Substance: DUPILUMAB
     Dosage: 300 MG, QOW
     Route: 058
     Dates: start: 20200728, end: 20210915
  3. CARAFATE [Concomitant]
     Active Substance: SUCRALFATE
     Dosage: LIQUID
  4. DUPILUMAB [Suspect]
     Active Substance: DUPILUMAB
     Indication: ASTHMA
     Dosage: 600 MG, 1X
     Route: 058
     Dates: start: 20200714, end: 20200714

REACTIONS (2)
  - Pneumonia [Unknown]
  - Abdominal pain [Not Recovered/Not Resolved]

NARRATIVE: CASE EVENT DATE: 2020
